FAERS Safety Report 18668659 (Version 1)
Quarter: 2020Q4

REPORT INFORMATION
  Report Type: Spontaneous
  Country: CN (occurrence: CN)
  Receive Date: 20201228
  Receipt Date: 20201228
  Transmission Date: 20210114
  Serious: Yes (Other)
  Sender: FDA-Public Use
  Company Number: CN-GLAXOSMITHKLINE-CN2020255984

PATIENT
  Age: 62 Year
  Sex: Male

DRUGS (2)
  1. VOTALIN [Suspect]
     Active Substance: DICLOFENAC SODIUM
     Indication: INTERVERTEBRAL DISC PROTRUSION
     Dosage: 75 MG, QD
     Route: 048
     Dates: start: 20201204, end: 20201204
  2. VOTALIN [Suspect]
     Active Substance: DICLOFENAC SODIUM
     Indication: PAIN

REACTIONS (3)
  - Anaphylactoid reaction [Recovered/Resolved]
  - Swelling of eyelid [Recovered/Resolved]
  - Erythema [Recovered/Resolved]

NARRATIVE: CASE EVENT DATE: 20201204
